FAERS Safety Report 8782873 (Version 1)
Quarter: 2012Q4

REPORT INFORMATION
  Report Type: 
  Country: GB (occurrence: GB)
  Receive Date: 20120913
  Receipt Date: 20120913
  Transmission Date: 20130627
  Serious: Yes (Disabling, Other)
  Sender: FDA-Public Use
  Company Number: PHHY2012GB078748

PATIENT
  Sex: Female
  Weight: 70 kg

DRUGS (1)
  1. PAROXETINE [Suspect]
     Route: 048

REACTIONS (14)
  - Memory impairment [Unknown]
  - Gait disturbance [Unknown]
  - Faecal incontinence [Unknown]
  - Dyspepsia [Unknown]
  - Tearfulness [Unknown]
  - Vision blurred [Unknown]
  - Diarrhoea [Unknown]
  - Dizziness [Unknown]
  - Paraesthesia [Unknown]
  - Headache [Unknown]
  - Irritability [Unknown]
  - Nausea [Unknown]
  - Pain in extremity [Unknown]
  - Withdrawal syndrome [Unknown]
